FAERS Safety Report 7671747-9 (Version None)
Quarter: 2011Q3

REPORT INFORMATION
  Report Type: 
  Country: None (occurrence: None)
  Receive Date: 20110727
  Receipt Date: 20110711
  Transmission Date: 20111222
  Serious: Yes (Other)
  Sender: FDA-Public Use
  Company Number: 2011PROUSA00468

PATIENT
  Age: 71 Year
  Sex: Male
  Weight: 87.4 kg

DRUGS (5)
  1. PROVENGE [Suspect]
  2. PROVENGE [Suspect]
     Indication: PROSTATE CANCER METASTATIC
     Dosage: 250ML, SINGLE, INTRAVENOUS; 250 ML, SINGLE, INTRAVENOUS; 250 MG, SINGLE, INTRAVENOUS
     Route: 042
     Dates: start: 20000627, end: 20110627
  3. PROVENGE [Suspect]
     Indication: PROSTATE CANCER METASTATIC
     Dosage: 250ML, SINGLE, INTRAVENOUS; 250 ML, SINGLE, INTRAVENOUS; 250 MG, SINGLE, INTRAVENOUS
     Route: 042
     Dates: start: 20110613, end: 20110613
  4. PROVENGE [Suspect]
     Indication: PROSTATE CANCER METASTATIC
     Dosage: 250ML, SINGLE, INTRAVENOUS; 250 ML, SINGLE, INTRAVENOUS; 250 MG, SINGLE, INTRAVENOUS
     Route: 042
     Dates: start: 20110711, end: 20110711
  5. PROVENGE [Suspect]

REACTIONS (2)
  - VASOSPASM [None]
  - THROMBOSIS [None]
